FAERS Safety Report 13273933 (Version 1)
Quarter: 2017Q1

REPORT INFORMATION
  Report Type: Spontaneous
  Country: US (occurrence: US)
  Receive Date: 20170227
  Receipt Date: 20170227
  Transmission Date: 20170428
  Serious: Yes (Hospitalization, Other)
  Sender: FDA-Public Use
  Company Number: US-PFIZER INC-2017075587

PATIENT
  Age: 87 Year
  Sex: Female
  Weight: 53 kg

DRUGS (4)
  1. NEXIUM [Concomitant]
     Active Substance: ESOMEPRAZOLE MAGNESIUM
     Indication: GASTROOESOPHAGEAL REFLUX DISEASE
     Dosage: 40 MG, 1X/DAY
  2. TRIMO SAN [Concomitant]
     Active Substance: OXYQUINOLINE SULFATE\SODIUM LAURYL SULFATE
     Indication: VAGINAL ODOUR
     Dosage: UNK
  3. PREMARIN [Suspect]
     Active Substance: ESTROGENS, CONJUGATED
     Indication: ATROPHIC VULVOVAGINITIS
     Dosage: 0.5 G, UNK
     Route: 067
  4. PREMARIN [Suspect]
     Active Substance: ESTROGENS, CONJUGATED
     Dosage: 2 G, EVERY DAY OR EVERY OTHER DAY
     Route: 067

REACTIONS (6)
  - Urinary tract infection [Unknown]
  - Vaginal haemorrhage [Unknown]
  - Drug effect incomplete [Unknown]
  - Malaise [Unknown]
  - Staphylococcal infection [Unknown]
  - Intentional product misuse [Not Recovered/Not Resolved]
